FAERS Safety Report 9027354 (Version 1)
Quarter: 2013Q1

REPORT INFORMATION
  Report Type: Spontaneous
  Country: AU (occurrence: AU)
  Receive Date: 20130123
  Receipt Date: 20130123
  Transmission Date: 20140127
  Serious: Yes (Life-Threatening, Hospitalization, Other)
  Sender: FDA-Public Use
  Company Number: AU-ROCHE-1130855

PATIENT
  Age: 78 Year
  Sex: Male

DRUGS (4)
  1. MIRCERA [Suspect]
     Indication: RENAL FAILURE CHRONIC
     Route: 042
     Dates: start: 20120711, end: 20120711
  2. METOPROLOL [Concomitant]
     Indication: HYPERTENSION
     Route: 048
  3. ROSUVASTATIN [Concomitant]
     Indication: HYPERLIPIDAEMIA
     Route: 048
  4. WARFARIN [Concomitant]
     Indication: ATRIAL FIBRILLATION
     Dosage: DOSE VARIES
     Route: 048

REACTIONS (6)
  - Hypersensitivity [Recovered/Resolved]
  - Pruritus [Recovered/Resolved]
  - Dyspnoea [Recovered/Resolved]
  - Flushing [Recovered/Resolved]
  - Loss of consciousness [Recovered/Resolved]
  - Anaphylactic reaction [Recovered/Resolved]
